FAERS Safety Report 9099483 (Version 1)
Quarter: 2013Q1

REPORT INFORMATION
  Report Type: Spontaneous
  Country: FR (occurrence: FR)
  Receive Date: 20130213
  Receipt Date: 20130213
  Transmission Date: 20140127
  Serious: Yes (Other)
  Sender: FDA-Public Use
  Company Number: FR-TEVA-384268ISR

PATIENT
  Sex: Male

DRUGS (4)
  1. GLIMEPIRIDE [Suspect]
     Indication: DIABETES MELLITUS
     Route: 048
     Dates: start: 201211
  2. JANUMET [Concomitant]
     Indication: DIABETES MELLITUS
     Route: 048
  3. INEGY [Concomitant]
     Route: 048
  4. LOSARTAN 100 MG (BRAND NAME NOT SPECIFIED) [Concomitant]
     Indication: HYPERTENSION
     Route: 048

REACTIONS (1)
  - Haematochezia [Unknown]
